FAERS Safety Report 5746524-6 (Version None)
Quarter: 2008Q2

REPORT INFORMATION
  Report Type: 
  Country: None (occurrence: None)
  Receive Date: 20080522
  Receipt Date: 20071031
  Transmission Date: 20081010
  Serious: No
  Sender: FDA-Public Use
  Company Number: US-BRISTOL-MYERS SQUIBB COMPANY-13859129

PATIENT

DRUGS (3)
  1. CYTOXAN [Suspect]
  2. TAXOTERE [Suspect]
  3. ADRIAMYCIN PFS [Suspect]

REACTIONS (1)
  - INJECTION SITE EXTRAVASATION [None]
